FAERS Safety Report 8153592-3 (Version None)
Quarter: 2012Q1

REPORT INFORMATION
  Report Type: 
  Country: None (occurrence: None)
  Receive Date: 20120215
  Receipt Date: 20120131
  Transmission Date: 20120608
  Serious: Yes (Other)
  Sender: FDA-Public Use
  Company Number: 2012P1003739

PATIENT
  Age: 71 Year
  Sex: Female

DRUGS (5)
  1. PRAVASTATIN [Concomitant]
  2. VALPROIC ACID [Suspect]
     Indication: CONVULSION
     Dosage: 1100 MG; IV, 500 MG; BID; IV, 250 MG; NGT
     Route: 042
  3. DEXAMETHASONE [Concomitant]
  4. FISH OIL [Concomitant]
  5. WARFARIN SODIUM [Suspect]
     Indication: DEEP VEIN THROMBOSIS
     Dosage: 2.5 MG; MON-FRI; PO, 5 MG; SAT-SUN; PO, .75 MG
     Route: 048

REACTIONS (4)
  - VASOGENIC CEREBRAL OEDEMA [None]
  - INTERNATIONAL NORMALISED RATIO INCREASED [None]
  - DRUG INTERACTION [None]
  - COMPLEX PARTIAL SEIZURES [None]
